FAERS Safety Report 6023683 (Version 2)
Quarter: 2012Q4

REPORT INFORMATION
  Report Type: 
  Country: IN (occurrence: IN)
  Receive Date: 20060412
  Receipt Date: 20120925
  Transmission Date: 20130627
  Serious: Yes (Death, Hospitalization, Disabling, Other)
  Sender: FDA-Public Use
  Company Number: PHHO2006IN02613

PATIENT
  Age: 81 Year
  Sex: Male

DRUGS (1)
  1. GLIVEC [Suspect]
     Indication: CHRONIC MYELOID LEUKAEMIA
     Dates: start: 20020802

REACTIONS (13)
  - Death [Fatal]
  - Lung infection [Unknown]
  - Coma [Unknown]
  - Loss of consciousness [Unknown]
  - Pupillary reflex impaired [Unknown]
  - Myocardial infarction [Unknown]
  - Bone marrow failure [Recovered/Resolved]
  - Haemoglobin decreased [Unknown]
  - Platelet count decreased [Unknown]
  - White blood cell count decreased [Unknown]
  - Blast crisis in myelogenous leukaemia [Unknown]
  - Drug ineffective [Unknown]
  - Hypophagia [None]
